FAERS Safety Report 9469369 (Version 1)
Quarter: 2013Q3

REPORT INFORMATION
  Report Type: Report from Study
  Country: AR (occurrence: AR)
  Receive Date: 20130821
  Receipt Date: 20130821
  Transmission Date: 20140515
  Serious: Yes (Other)
  Sender: FDA-Public Use
  Company Number: AR-ROCHE-1263926

PATIENT
  Sex: Male

DRUGS (1)
  1. RANIBIZUMAB [Suspect]
     Indication: MACULOPATHY
     Dosage: MONTHLY OR EVERY MONTH AND A HALF OR MORE THAN AFTER 4 MONTHS
     Route: 050
     Dates: start: 20110321

REACTIONS (4)
  - Maculopathy [Unknown]
  - Visual acuity reduced [Unknown]
  - Visual impairment [Unknown]
  - Drug ineffective [Unknown]
